FAERS Safety Report 14757800 (Version 1)
Quarter: 2018Q2

REPORT INFORMATION
  Report Type: Report from Study
  Country: US (occurrence: US)
  Receive Date: 20180413
  Receipt Date: 20180413
  Transmission Date: 20180711
  Serious: Yes (Other)
  Sender: FDA-Public Use
  Company Number: PHEH2018US013383

PATIENT
  Age: 46 Year
  Sex: Female

DRUGS (1)
  1. COSENTYX [Suspect]
     Active Substance: SECUKINUMAB
     Indication: PRODUCT USED FOR UNKNOWN INDICATION
     Dosage: 300 MG, QW
     Route: 058

REACTIONS (10)
  - Inflammation [Unknown]
  - Onycholysis [Unknown]
  - Pain [Unknown]
  - Vision blurred [Unknown]
  - Alopecia [Unknown]
  - Feeling abnormal [Unknown]
  - Deafness [Unknown]
  - Blister [Unknown]
  - Tinnitus [Unknown]
  - Peripheral swelling [Unknown]

NARRATIVE: CASE EVENT DATE: 20180104
